FAERS Safety Report 6524426-5 (Version None)
Quarter: 2010Q1

REPORT INFORMATION
  Report Type: 
  Country: None (occurrence: None)
  Receive Date: 20100104
  Receipt Date: 20091222
  Transmission Date: 20100710
  Serious: Yes (Other)
  Sender: FDA-Public Use
  Company Number: US-RB-027194-09

PATIENT
  Sex: Female

DRUGS (2)
  1. DELSYM COUGH SYRUP [Suspect]
     Dosage: UNKNOWN
     Route: 048
  2. ALKA SELTZER PLUS [Suspect]

REACTIONS (1)
  - CONSCIOUSNESS FLUCTUATING [None]
